FAERS Safety Report 4832008-6 (Version None)
Quarter: 2005Q4

REPORT INFORMATION
  Report Type: 
  Country: None (occurrence: None)
  Receive Date: 20051116
  Receipt Date: 20051102
  Transmission Date: 20060501
  Serious: Yes (Other)
  Sender: FDA-Public Use
  Company Number: 2005-10-1659

PATIENT
  Sex: Female

DRUGS (3)
  1. CLARITIN [Suspect]
     Indication: PRURITUS
     Dosage: SEE IMAGE
     Route: 048
     Dates: start: 20050707, end: 20050714
  2. CLARITIN [Suspect]
     Indication: PRURITUS
     Dosage: SEE IMAGE
     Route: 048
     Dates: start: 20050707, end: 20050829
  3. CLARITIN [Suspect]
     Indication: PRURITUS
     Dosage: SEE IMAGE
     Route: 048
     Dates: start: 20050822, end: 20050829

REACTIONS (2)
  - BLOOD CREATINE PHOSPHOKINASE INCREASED [None]
  - PARAESTHESIA [None]
